FAERS Safety Report 4664775-9 (Version None)
Quarter: 2005Q2

REPORT INFORMATION
  Report Type: 
  Country: None (occurrence: None)
  Receive Date: 20050518
  Receipt Date: 20050218
  Transmission Date: 20051028
  Serious: Yes (Disabling, Other)
  Sender: FDA-Public Use
  Company Number: PHEH2005US02234

PATIENT
  Age: 52 Year
  Sex: Female

DRUGS (5)
  1. ZOMETA [Suspect]
     Indication: METASTASES TO BONE
     Dosage: 4 MG QMO
     Dates: start: 20020821
  2. HERCEPTIN [Concomitant]
     Indication: BREAST CANCER
     Dosage: 150 WEEKLY
     Route: 042
     Dates: start: 20031231
  3. TAXOTERE [Concomitant]
     Indication: BREAST CANCER
     Dosage: 45MG WEEKLY
     Route: 042
     Dates: start: 20031001, end: 20041007
  4. DECADRON                                /CAN/ [Concomitant]
     Indication: INFLAMMATION
     Dosage: 4MG ON AND OFF
     Route: 048
  5. ARIMIDEX [Concomitant]
     Indication: BREAST CANCER
     Dosage: 1 MG, QD
     Dates: start: 20020101

REACTIONS (5)
  - INFECTION [None]
  - OSTEONECROSIS [None]
  - PAIN IN JAW [None]
  - SOFT TISSUE DISORDER [None]
  - SWELLING [None]
